FAERS Safety Report 6344135-5 (Version None)
Quarter: 2009Q3

REPORT INFORMATION
  Report Type: 
  Country: None (occurrence: None)
  Receive Date: 20090908
  Receipt Date: 20090827
  Transmission Date: 20100115
  Serious: Yes (Disabling)
  Sender: FDA-Public Use
  Company Number: JP-SANOFI-SYNTHELABO-A01200906987

PATIENT
  Sex: Male
  Weight: 53 kg

DRUGS (8)
  1. SEISHOKU [Concomitant]
     Indication: URINE OUTPUT DECREASED
     Route: 042
     Dates: start: 20090619, end: 20090621
  2. LACTEC [Concomitant]
     Indication: URINE OUTPUT DECREASED
     Dosage: 500 ML
     Route: 042
     Dates: start: 20090619, end: 20090619
  3. DECADRON [Concomitant]
     Indication: PREMEDICATION
     Dosage: 10 MG
     Route: 042
     Dates: start: 20090617, end: 20090617
  4. SEROTONE [Concomitant]
     Indication: PREMEDICATION
     Dosage: 10 MG
     Route: 042
     Dates: start: 20090617, end: 20090617
  5. LEUCOVORIN CALCIUM [Concomitant]
     Indication: RECTAL CANCER
     Dosage: 300 MG
     Route: 042
     Dates: start: 20090617, end: 20090617
  6. FLUOROURACIL [Suspect]
     Indication: RECTAL CANCER
     Route: 040
     Dates: start: 20090617, end: 20090617
  7. FLUOROURACIL [Suspect]
     Route: 041
     Dates: start: 20090617, end: 20090618
  8. ELPLAT [Suspect]
     Indication: RECTAL CANCER
     Route: 041
     Dates: start: 20090617, end: 20090617

REACTIONS (1)
  - HYPERAMMONAEMIA [None]
